FAERS Safety Report 4381832-5 (Version None)
Quarter: 2004Q2

REPORT INFORMATION
  Report Type: 
  Country: None (occurrence: None)
  Receive Date: 20040617
  Receipt Date: 20040607
  Transmission Date: 20050107
  Serious: Yes (Hospitalization)
  Sender: FDA-Public Use
  Company Number: CIO04002777

PATIENT
  Age: 80 Year
  Sex: Female
  Weight: 63.5 kg

DRUGS (5)
  1. VAPORUB, REGULAR SCENT(CEDA LEAF OIL 20.4 MG, TURPENTINE OIL 152.59 MG [Suspect]
     Dosage: 3 /DAY FOR 15 DAYS,  INTRANASAL
     Dates: start: 20031223, end: 20040106
  2. TIAZAC [Concomitant]
  3. ENBREL [Concomitant]
  4. MICRO-K (POTASSIUM CHLORIDE) [Concomitant]
  5. INDAPAMIDE [Concomitant]

REACTIONS (4)
  - LUNG DISORDER [None]
  - MEDICATION ERROR [None]
  - PNEUMONIA [None]
  - PULMONARY CONGESTION [None]
